FAERS Safety Report 12854775 (Version 3)
Quarter: 2017Q1

REPORT INFORMATION
  Report Type: Report from Study
  Country: None (occurrence: US)
  Receive Date: 20161017
  Receipt Date: 20170120
  Transmission Date: 20170428
  Serious: Yes (Other)
  Sender: FDA-Public Use
  Company Number: US-ABBVIE-16K-163-1754736-00

PATIENT
  Age: 51 Year
  Sex: Female

DRUGS (2)
  1. HUMIRA [Suspect]
     Active Substance: ADALIMUMAB
     Indication: CROHN^S DISEASE
     Route: 058
     Dates: start: 2015
  2. ZANTAC [Concomitant]
     Active Substance: RANITIDINE HYDROCHLORIDE
     Indication: GASTROOESOPHAGEAL REFLUX DISEASE

REACTIONS (7)
  - Uterine leiomyoma [Recovered/Resolved]
  - Vaginal haemorrhage [Recovering/Resolving]
  - Abdominal distension [Recovering/Resolving]
  - Abdominal pain [Recovering/Resolving]
  - Hysterectomy [Recovering/Resolving]
  - Proctitis [Recovering/Resolving]
  - Inflammation [Unknown]

NARRATIVE: CASE EVENT DATE: 20160721
